FAERS Safety Report 8837310 (Version 2)
Quarter: 2012Q4

REPORT INFORMATION
  Report Type: 
  Country: US (occurrence: US)
  Receive Date: 20121012
  Receipt Date: 20121022
  Transmission Date: 20130627
  Serious: No
  Sender: FDA-Public Use
  Company Number: US-TEVA-364065USA

PATIENT
  Age: 47 Year
  Sex: Female
  Weight: 63.11 kg

DRUGS (4)
  1. PLAN B ONE-STEP [Suspect]
     Indication: POST COITAL CONTRACEPTION
     Dosage: 1.5 Milligram Daily;
     Route: 048
     Dates: start: 20121007, end: 20121007
  2. TOPAMAX [Concomitant]
     Indication: MIGRAINE
  3. PROPRANOLOL [Concomitant]
     Indication: HYPERTENSION
  4. ALLERGY MEDICATION [Concomitant]
     Indication: HYPERSENSITIVITY

REACTIONS (2)
  - Vaginal discharge [Recovered/Resolved]
  - Fungal infection [Recovered/Resolved]
